FAERS Safety Report 7115909-8 (Version None)
Quarter: 2010Q4

REPORT INFORMATION
  Report Type: 
  Country: None (occurrence: None)
  Receive Date: 20101122
  Receipt Date: 20101111
  Transmission Date: 20110411
  Serious: Yes (Death)
  Sender: FDA-Public Use
  Company Number: US-JNJFOC-20080101812

PATIENT
  Age: 22 Year
  Sex: Female

DRUGS (5)
  1. ACETAMINOPHEN [Suspect]
     Route: 048
  2. ACETAMINOPHEN [Suspect]
     Indication: SUICIDE ATTEMPT
     Route: 048
  3. ASPIRIN [Suspect]
     Indication: SUICIDE ATTEMPT
     Route: 048
  4. BELLADONNA [Suspect]
     Indication: SUICIDE ATTEMPT
     Route: 048
  5. VENLAFAXINE [Suspect]
     Indication: SUICIDE ATTEMPT
     Route: 048

REACTIONS (2)
  - DRUG TOXICITY [None]
  - SUICIDE ATTEMPT [None]
